FAERS Safety Report 21894215 (Version 1)
Quarter: 2023Q1

REPORT INFORMATION
  Report Type: Spontaneous
  Country: US (occurrence: US)
  Receive Date: 20230121
  Receipt Date: 20230121
  Transmission Date: 20230418
  Serious: Yes (Life-Threatening, Hospitalization, Other)
  Sender: FDA-Public Use
  Company Number: US-MLMSERVICE-20230105-4026235-1

PATIENT
  Age: 24 Year
  Sex: Male

DRUGS (2)
  1. LOPERAMIDE [Suspect]
     Active Substance: LOPERAMIDE
     Indication: Euphoric mood
     Dosage: 200 MILLIGRAM, EVERY OTHER DAY (200 TO 300 MG OF LOPERAMIDE EVERY OTHER DAY FOR THE PAST 6 MONTHS)
     Route: 048
  2. LOPERAMIDE [Suspect]
     Active Substance: LOPERAMIDE
     Dosage: 300 MILLIGRAM, EVERY OTHER DAY (200 TO 300 MG OF LOPERAMIDE EVERY OTHER DAY FOR THE PAST 6 MONTHS)
     Route: 048

REACTIONS (11)
  - Atrioventricular block first degree [Unknown]
  - Electrocardiogram QT prolonged [Unknown]
  - Mental status changes [Recovering/Resolving]
  - Syncope [Recovered/Resolved]
  - Ventricular tachycardia [Recovered/Resolved]
  - Hypotension [Recovering/Resolving]
  - Sinus bradycardia [Recovered/Resolved]
  - Urinary incontinence [Recovering/Resolving]
  - Intentional product misuse [Recovering/Resolving]
  - Drug abuse [Recovering/Resolving]
  - Overdose [Recovering/Resolving]
